FAERS Safety Report 5179037-3 (Version None)
Quarter: 2006Q4

REPORT INFORMATION
  Report Type: 
  Country: None (occurrence: None)
  Receive Date: 20061214
  Receipt Date: 20061214
  Transmission Date: 20070319
  Serious: No
  Sender: FDA-Public Use
  Company Number: None

PATIENT
  Age: 47 Year
  Sex: Male
  Weight: 92.9874 kg

DRUGS (1)
  1. AVODART [Suspect]
     Indication: PROSTATE EXAMINATION ABNORMAL
     Dosage: DAILY PO
     Route: 048
     Dates: start: 20050901, end: 20060307

REACTIONS (1)
  - AMNESIA [None]
